FAERS Safety Report 9093538 (Version 1)
Quarter: 2013Q1

REPORT INFORMATION
  Report Type: Report from Study
  Country: IT (occurrence: IT)
  Receive Date: 20130201
  Receipt Date: 20130201
  Transmission Date: 20140127
  Serious: Yes (Other)
  Sender: FDA-Public Use
  Company Number: IT-PFIZER INC-2013028346

PATIENT
  Age: 45 Year
  Sex: Female

DRUGS (2)
  1. EXEMESTANE [Suspect]
     Indication: BREAST CANCER
     Dosage: 25 MG, UNK
     Route: 048
     Dates: start: 20090716, end: 20091223
  2. TRIPTORELIN PAMOATE [Suspect]
     Indication: BREAST CANCER
     Dosage: 3.75 MG, UNK
     Route: 030
     Dates: start: 20090604

REACTIONS (1)
  - Cerebrovascular accident [Not Recovered/Not Resolved]
